FAERS Safety Report 9269937 (Version 1)
Quarter: 2013Q2

REPORT INFORMATION
  Report Type: Spontaneous
  Country: DK (occurrence: DK)
  Receive Date: 20130503
  Receipt Date: 20130503
  Transmission Date: 20140414
  Serious: Yes (Other)
  Sender: FDA-Public Use
  Company Number: DK-PFIZER INC-2013118806

PATIENT
  Age: 38 Year
  Sex: Male

DRUGS (2)
  1. TOVIAZ [Suspect]
     Dosage: 4 MG, UNK
  2. TOVIAZ [Suspect]
     Dosage: 8 MG, UNK

REACTIONS (8)
  - Urinary retention [Unknown]
  - Urinary incontinence [Unknown]
  - Abdominal pain [Unknown]
  - Dry mouth [Unknown]
  - Pruritus [Unknown]
  - Haemorrhoids [Unknown]
  - Rash erythematous [Unknown]
  - Constipation [Unknown]
